FAERS Safety Report 19942581 (Version 10)
Quarter: 2022Q2

REPORT INFORMATION
  Report Type: Other
  Country: LB (occurrence: None)
  Receive Date: 20211012
  Receipt Date: 20220620
  Transmission Date: 20220721
  Serious: Yes (Other)
  Sender: FDA-Public Use
  Company Number: LB-ROCHE-2898214

PATIENT
  Age: 41 Year
  Sex: Female

DRUGS (2)
  1. HERCEPTIN [Suspect]
     Active Substance: TRASTUZUMAB
     Indication: Breast cancer metastatic
     Route: 058
     Dates: start: 20210408
  2. PERJETA [Suspect]
     Active Substance: PERTUZUMAB
     Indication: Breast cancer metastatic
     Route: 042
     Dates: start: 20210408

REACTIONS (6)
  - Off label use [Unknown]
  - Drug therapy [Unknown]
  - Inappropriate schedule of product administration [Unknown]
  - Cardiomyopathy [Not Recovered/Not Resolved]
  - Metastases to central nervous system [Unknown]
  - COVID-19 [Unknown]

NARRATIVE: CASE EVENT DATE: 20210726
